FAERS Safety Report 6647582-7 (Version None)
Quarter: 2010Q1

REPORT INFORMATION
  Report Type: 
  Country: None (occurrence: None)
  Receive Date: 20100323
  Receipt Date: 20100312
  Transmission Date: 20100710
  Serious: Yes (Hospitalization, Other)
  Sender: FDA-Public Use
  Company Number: FR-AMGEN-US359415

PATIENT
  Sex: Female

DRUGS (3)
  1. ENBREL [Suspect]
     Indication: ANKYLOSING SPONDYLITIS
     Route: 058
     Dates: start: 20090702
  2. ATARAX [Suspect]
     Indication: PREMEDICATION
     Dosage: 1 DOSE ON THE PREVIOUS AND ON THE SAME DAY AS THE INJECTION OF ENBREL
     Route: 065
     Dates: start: 20090715, end: 20090716
  3. AERIUS [Concomitant]
     Indication: PREMEDICATION
     Dosage: 1 TABLET ON THE PREVIOUS AND ON THE SAME DAY AS THE INJECTION OF ENBREL
     Route: 048
     Dates: start: 20090701

REACTIONS (20)
  - BALANCE DISORDER [None]
  - ERYTHEMA MULTIFORME [None]
  - EYE INFLAMMATION [None]
  - FATIGUE [None]
  - HEART RATE IRREGULAR [None]
  - IMPETIGO [None]
  - INFLUENZA LIKE ILLNESS [None]
  - INJECTION SITE ERYTHEMA [None]
  - INJECTION SITE HAEMATOMA [None]
  - INJECTION SITE INDURATION [None]
  - INJECTION SITE PRURITUS [None]
  - INJECTION SITE WARMTH [None]
  - NERVOUSNESS [None]
  - NEURALGIA [None]
  - SKIN HYPERTROPHY [None]
  - SKIN ULCER [None]
  - SOMNOLENCE [None]
  - STAPHYLOCOCCAL SKIN INFECTION [None]
  - SYSTEMIC LUPUS ERYTHEMATOSUS [None]
  - VERTIGO [None]
